FAERS Safety Report 6200554-9 (Version None)
Quarter: 2009Q2

REPORT INFORMATION
  Report Type: 
  Country: None (occurrence: None)
  Receive Date: 20090522
  Receipt Date: 20080408
  Transmission Date: 20091009
  Serious: No
  Sender: FDA-Public Use
  Company Number: US-ALEXION-A200800081

PATIENT
  Sex: Male

DRUGS (8)
  1. SOLIRIS [Suspect]
     Indication: PAROXYSMAL NOCTURNAL HAEMOGLOBINURIA
     Dosage: 600 MG, SINGLE
     Route: 048
     Dates: start: 20070525, end: 20070525
  2. SOLIRIS [Suspect]
     Dosage: 600 MG, SINGLE
     Route: 048
     Dates: start: 20070601, end: 20070601
  3. SOLIRIS [Suspect]
     Dosage: 600 MG, SINGLE
     Route: 048
     Dates: start: 20070608, end: 20070608
  4. SOLIRIS [Suspect]
     Dosage: 600 MG, SINGLE
     Route: 048
     Dates: start: 20070615, end: 20070615
  5. SOLIRIS [Suspect]
     Dosage: 900 MG, SINGLE
     Route: 048
     Dates: start: 20070622, end: 20070622
  6. NEUPOGEN [Suspect]
     Dosage: 100 MG, WEEKLY
     Dates: start: 20080101
  7. DESFERAL [Concomitant]
     Dosage: 12 MG, TWICE A WEEK
  8. FOLIC ACID [Concomitant]
     Indication: PAROXYSMAL NOCTURNAL HAEMOGLOBINURIA
     Dosage: 1 MG, QD
     Route: 048

REACTIONS (1)
  - BONE PAIN [None]
